FAERS Safety Report 10056345 (Version 2)
Quarter: 2014Q2

REPORT INFORMATION
  Report Type: Spontaneous
  Country: JP (occurrence: None)
  Receive Date: 20140401
  Receipt Date: 20140414
  Transmission Date: 20141212
  Serious: Yes (Other)
  Sender: FDA-Public Use
  Company Number: SP07649

PATIENT
  Age: 80 Year
  Sex: Female

DRUGS (6)
  1. MOVIPREP [Suspect]
     Indication: BOWEL PREPARATION
     Route: 048
     Dates: start: 20140227, end: 20140227
  2. ALOSENN [Concomitant]
  3. PENCLUSIN [Concomitant]
  4. LIDOCAINE [Concomitant]
  5. GASCON [Concomitant]
  6. GLUCAGON [Concomitant]

REACTIONS (1)
  - Colitis ischaemic [None]
